FAERS Safety Report 6057692-3 (Version None)
Quarter: 2009Q1

REPORT INFORMATION
  Report Type: 
  Country: None (occurrence: None)
  Receive Date: 20090129
  Receipt Date: 20080917
  Transmission Date: 20090719
  Serious: No
  Sender: FDA-Public Use
  Company Number: A0747944A

PATIENT
  Sex: Female

DRUGS (1)
  1. MEPRON [Suspect]
     Route: 048
     Dates: start: 20080801

REACTIONS (4)
  - COUGH [None]
  - ILL-DEFINED DISORDER [None]
  - NAUSEA [None]
  - VOMITING [None]
